FAERS Safety Report 6308003-7 (Version None)
Quarter: 2009Q3

REPORT INFORMATION
  Report Type: 
  Country: None (occurrence: None)
  Receive Date: 20090813
  Receipt Date: 20090805
  Transmission Date: 20100115
  Serious: Yes (Congenital Anomaly)
  Sender: FDA-Public Use
  Company Number: A0679397A

PATIENT
  Sex: Female

DRUGS (1)
  1. PAROXETINE HCL [Suspect]
     Indication: DEPRESSION
     Dosage: 20MG PER DAY
     Dates: start: 20050503, end: 20070701

REACTIONS (3)
  - ATRIAL SEPTAL DEFECT [None]
  - COARCTATION OF THE AORTA [None]
  - DRUG EXPOSURE DURING PREGNANCY [None]
